FAERS Safety Report 17261596 (Version 7)
Quarter: 2020Q3

REPORT INFORMATION
  Report Type: Spontaneous
  Country: US (occurrence: US)
  Receive Date: 20200113
  Receipt Date: 20200831
  Transmission Date: 20201102
  Serious: Yes (Other)
  Sender: FDA-Public Use
  Company Number: US-GILEAD-2020-0446112

PATIENT
  Age: 66 Year
  Sex: Male
  Weight: 74.83 kg

DRUGS (17)
  1. REYATAZ [Concomitant]
     Active Substance: ATAZANAVIR SULFATE
  2. TRIUMEQ [Concomitant]
     Active Substance: ABACAVIR SULFATE\DOLUTEGRAVIR SODIUM\LAMIVUDINE
  3. PRAVASTATIN SODIUM. [Concomitant]
     Active Substance: PRAVASTATIN SODIUM
  4. PENICILLIN B [Concomitant]
     Active Substance: PHENETICILLIN
  5. CHOLESTEROL [Concomitant]
     Active Substance: CHOLESTEROL
  6. PREZISTA [Concomitant]
     Active Substance: DARUNAVIR ETHANOLATE
  7. BENAZEPRIL [Concomitant]
     Active Substance: BENAZEPRIL HYDROCHLORIDE
  8. ZIAGEN [Concomitant]
     Active Substance: ABACAVIR SULFATE
  9. TRUVADA [Suspect]
     Active Substance: EMTRICITABINE\TENOFOVIR DISOPROXIL FUMARATE
     Dosage: UNK
     Route: 048
     Dates: start: 201501, end: 201602
  10. TRIAMCINOLONE [Concomitant]
     Active Substance: TRIAMCINOLONE
  11. ATORVASTATIN [Concomitant]
     Active Substance: ATORVASTATIN
  12. ASPIR 81 [Concomitant]
     Active Substance: ASPIRIN
     Dosage: 81 MG
  13. NAPROXEN SODIUM. [Concomitant]
     Active Substance: NAPROXEN SODIUM
  14. ALEVE [Concomitant]
     Active Substance: NAPROXEN SODIUM
  15. TRUVADA [Suspect]
     Active Substance: EMTRICITABINE\TENOFOVIR DISOPROXIL FUMARATE
     Indication: HIV INFECTION
     Dosage: 200?300 MG
     Route: 048
     Dates: start: 20121112, end: 201401
  16. NORVIR [Concomitant]
     Active Substance: RITONAVIR
  17. DARUNAVIR [Concomitant]
     Active Substance: DARUNAVIR

REACTIONS (12)
  - Economic problem [Unknown]
  - Bone density decreased [Unknown]
  - Emotional distress [Unknown]
  - Anhedonia [Unknown]
  - Anxiety [Unknown]
  - Pain [Unknown]
  - Chronic kidney disease [Not Recovered/Not Resolved]
  - Viral load increased [Unknown]
  - Renal failure [Unknown]
  - Drug ineffective [Unknown]
  - Osteopenia [Unknown]
  - Skeletal injury [Not Recovered/Not Resolved]

NARRATIVE: CASE EVENT DATE: 20170321
